FAERS Safety Report 5914845-X (Version None)
Quarter: 2008Q4

REPORT INFORMATION
  Report Type: 
  Country: None (occurrence: None)
  Receive Date: 20081010
  Receipt Date: 20081001
  Transmission Date: 20090506
  Serious: Yes (Hospitalization, Other)
  Sender: FDA-Public Use
  Company Number: PHEH2008US08777

PATIENT
  Weight: 102.49 kg

DRUGS (4)
  1. RECLAST [Suspect]
     Indication: OSTEOPOROSIS
     Dosage: 5 MG, ONCE/SINGLE
     Dates: start: 20080828, end: 20080828
  2. PAXIL [Concomitant]
     Dosage: 12.5 MG, UNK
     Dates: start: 20050901
  3. OMACOR                             /01403701/ [Concomitant]
     Dosage: UNK
     Dates: start: 20071001
  4. TESTOSTERONE [Concomitant]
     Dosage: 200 MG, QW2
     Dates: start: 20071201

REACTIONS (10)
  - BACK PAIN [None]
  - BLOOD GLUCOSE INCREASED [None]
  - CHEST PAIN [None]
  - LYMPHOCYTE COUNT DECREASED [None]
  - MALAISE [None]
  - NEUTROPHIL COUNT INCREASED [None]
  - PAIN [None]
  - PAIN IN JAW [None]
  - PYREXIA [None]
  - SPECIFIC GRAVITY URINE ABNORMAL [None]
